FAERS Safety Report 26073219 (Version 1)
Quarter: 2025Q4

REPORT INFORMATION
  Report Type: Spontaneous
  Country: US (occurrence: US)
  Receive Date: 20251121
  Receipt Date: 20251121
  Transmission Date: 20260117
  Serious: No
  Sender: CSL BEHRING
  Company Number: US-BEH-2025225004

PATIENT

DRUGS (1)
  1. HIZENTRA [Suspect]
     Active Substance: HUMAN IMMUNOGLOBULIN G
     Route: 065

REACTIONS (6)
  - Infusion site erythema [Unknown]
  - Infusion site pruritus [Unknown]
  - Dermatitis contact [Unknown]
  - Allergy to metals [Unknown]
  - Infusion site swelling [Unknown]
  - Infusion site erythema [Unknown]
